FAERS Safety Report 6530629-6 (Version None)
Quarter: 2010Q1

REPORT INFORMATION
  Report Type: 
  Country: None (occurrence: None)
  Receive Date: 20100108
  Receipt Date: 20100105
  Transmission Date: 20100710
  Serious: Yes (Other)
  Sender: FDA-Public Use
  Company Number: US-RB-000065-10

PATIENT
  Sex: Female

DRUGS (1)
  1. MUCINEX DM [Suspect]
     Indication: COUGH
     Dosage: TOOK PRODUCT AS DIRECTED FOR 2 DAYS, EVERY 12 HOURS, TOOK 4 TABLETS IN TOTAL
     Route: 048
     Dates: start: 20091227

REACTIONS (2)
  - PHARYNGEAL OEDEMA [None]
  - SWOLLEN TONGUE [None]
